FAERS Safety Report 13603756 (Version 3)
Quarter: 2017Q3

REPORT INFORMATION
  Report Type: Report from Study
  Country: US (occurrence: US)
  Receive Date: 20170602
  Receipt Date: 20170915
  Transmission Date: 20171127
  Serious: No
  Sender: FDA-Public Use
  Company Number: US-AMGEN-USASL2017081506

PATIENT
  Age: 15 Year
  Sex: Female

DRUGS (1)
  1. ENBREL [Suspect]
     Active Substance: ETANERCEPT
     Indication: PSORIASIS
     Dosage: 50 MG, QWK
     Route: 058
     Dates: start: 20170325

REACTIONS (7)
  - Psoriasis [Unknown]
  - Pruritus [Unknown]
  - Hormone level abnormal [Unknown]
  - Menstrual disorder [Unknown]
  - Skin exfoliation [Unknown]
  - Ill-defined disorder [Unknown]
  - Erythema [Unknown]

NARRATIVE: CASE EVENT DATE: 2017
